FAERS Safety Report 13805186 (Version 1)
Quarter: 2017Q3

REPORT INFORMATION
  Report Type: Spontaneous
  Country: US (occurrence: US)
  Receive Date: 20170728
  Receipt Date: 20170728
  Transmission Date: 20171127
  Serious: No
  Sender: FDA-Public Use
  Company Number: US-PFIZER INC-2017328085

PATIENT
  Age: 8 Decade
  Sex: Male
  Weight: 84 kg

DRUGS (1)
  1. XALATAN [Suspect]
     Active Substance: LATANOPROST
     Indication: GLAUCOMA
     Dosage: ONE OR TWO DROPS A DAY IN LEFT EYE

REACTIONS (2)
  - Eye colour change [Not Recovered/Not Resolved]
  - Product use issue [Unknown]
